FAERS Safety Report 23876425 (Version 1)
Quarter: 2024Q2

REPORT INFORMATION
  Report Type: Spontaneous
  Country: CA (occurrence: CA)
  Receive Date: 20240520
  Receipt Date: 20240520
  Transmission Date: 20240716
  Serious: Yes (Other)
  Sender: FDA-Public Use
  Company Number: CA-PFIZER INC-202400171779

PATIENT
  Age: 51 Year
  Sex: Female

DRUGS (6)
  1. SULFASALAZINE [Suspect]
     Active Substance: SULFASALAZINE
     Dosage: 1 DF
     Route: 065
  2. DEXAMETHASONE [Concomitant]
     Active Substance: DEXAMETHASONE
     Dosage: 7.5 MG, DAILY (TAPERED A WEEK AGO)
     Route: 048
  3. PREDNISONE [Concomitant]
     Active Substance: PREDNISONE
     Indication: Sarcoidosis
     Dosage: 60 MG
     Dates: start: 201704
  4. PREDNISONE [Concomitant]
     Active Substance: PREDNISONE
     Dosage: 35 MG (TAPER)
  5. PREDNISONE [Concomitant]
     Active Substance: PREDNISONE
     Dosage: 15 MG (MANY MONTHS)
  6. RITUXIMAB [Concomitant]
     Active Substance: RITUXIMAB
     Indication: Sarcoidosis
     Dosage: 1000 MG, DAY 1 AND DAY 15, UNKNOWN MANUFACTURER.
     Route: 042
     Dates: start: 202401, end: 202402

REACTIONS (1)
  - Melaena [Unknown]
